FAERS Safety Report 7468546-X (Version None)
Quarter: 2011Q2

REPORT INFORMATION
  Report Type: 
  Country: None (occurrence: None)
  Receive Date: 20110509
  Receipt Date: 20110426
  Transmission Date: 20111010
  Serious: Yes (Other)
  Sender: FDA-Public Use
  Company Number: NZ-MYLANLABS-2011S1008704

PATIENT
  Age: 51 Year
  Sex: Male

DRUGS (3)
  1. AZATHIOPRINE [Interacting]
     Dosage: DOSE DECREASED FROM 300MG AT THE TIME OF ALLOPURINOL INITIATION.
     Route: 065
  2. ALLOPURINOL [Interacting]
     Indication: COLITIS ULCERATIVE
     Route: 065
  3. AZATHIOPRINE [Suspect]
     Indication: COLITIS ULCERATIVE
     Dosage: DOSE DECREASED TO 50MG AT THE TIME OF ALLOPURINOL INITIATION.
     Route: 065

REACTIONS (2)
  - APLASIA PURE RED CELL [None]
  - DRUG INTERACTION [None]
